FAERS Safety Report 19732693 (Version 1)
Quarter: 2021Q3

REPORT INFORMATION
  Report Type: Spontaneous
  Country: US (occurrence: US)
  Receive Date: 20210821
  Receipt Date: 20210821
  Transmission Date: 20211014
  Serious: Yes (Hospitalization)
  Sender: FDA-Public Use
  Company Number: None

PATIENT
  Age: 55 Year
  Sex: Male
  Weight: 89.55 kg

DRUGS (2)
  1. REGEN?COV [Suspect]
     Active Substance: CASIRIVIMAB\IMDEVIMAB
     Indication: SARS-COV-2 TEST POSITIVE
  2. REGEN?COV [Concomitant]
     Active Substance: CASIRIVIMAB\IMDEVIMAB

REACTIONS (11)
  - Chills [None]
  - Confusional state [None]
  - Nausea [None]
  - Breath sounds abnormal [None]
  - Hyperhidrosis [None]
  - Headache [None]
  - Pyrexia [None]
  - Oxygen saturation [None]
  - Myalgia [None]
  - Decreased appetite [None]
  - Disorientation [None]

NARRATIVE: CASE EVENT DATE: 20210817
